FAERS Safety Report 8052053-X (Version None)
Quarter: 2012Q1

REPORT INFORMATION
  Report Type: 
  Country: None (occurrence: None)
  Receive Date: 20120118
  Receipt Date: 20120106
  Transmission Date: 20120608
  Serious: Yes (Hospitalization)
  Sender: FDA-Public Use
  Company Number: US-ELI_LILLY_AND_COMPANY-US201201002635

PATIENT
  Sex: Female

DRUGS (16)
  1. FORTEO [Suspect]
     Dosage: 20 UG, QD
  2. PREVACID [Concomitant]
     Indication: GASTROOESOPHAGEAL REFLUX DISEASE
  3. PRAVASTATIN [Concomitant]
  4. SEROQUEL [Concomitant]
  5. PERCOCET [Concomitant]
     Indication: BACK PAIN
     Dosage: UNK
  6. VITAMIN D [Concomitant]
  7. CYMBALTA [Concomitant]
  8. MIACALCIN [Concomitant]
  9. FORTEO [Suspect]
     Dosage: 20 UG, QOD
  10. KLONOPIN [Concomitant]
     Indication: INSOMNIA
     Dosage: UNK
  11. FISH OIL [Concomitant]
  12. METROGEL [Concomitant]
     Indication: ROSACEA
  13. FORTEO [Suspect]
     Indication: OSTEOPOROSIS
     Dosage: 20 UG, QD
     Dates: start: 20100611
  14. CITRACAL [Concomitant]
  15. TOPROL-XL [Concomitant]
     Indication: BLOOD PRESSURE ABNORMAL
  16. QUINAPRIL [Concomitant]
     Indication: BLOOD PRESSURE ABNORMAL

REACTIONS (4)
  - PATELLA FRACTURE [None]
  - HUMERUS FRACTURE [None]
  - BACK PAIN [None]
  - JOINT SWELLING [None]
